FAERS Safety Report 15812112 (Version 1)
Quarter: 2019Q1

REPORT INFORMATION
  Report Type: Spontaneous
  Country: US (occurrence: US)
  Receive Date: 20190110
  Receipt Date: 20190110
  Transmission Date: 20190417
  Serious: No
  Sender: FDA-Public Use
  Company Number: None

PATIENT
  Age: 41 Year
  Sex: Female
  Weight: 103.5 kg

DRUGS (6)
  1. ELAVEL [Concomitant]
  2. NORCO [Concomitant]
     Active Substance: ACETAMINOPHEN\HYDROCODONE BITARTRATE
  3. ESTRADIOL TRANSDERMAL SYSTEM [Suspect]
     Active Substance: ESTRADIOL
     Indication: HORMONE REPLACEMENT THERAPY
     Dosage: ?          QUANTITY:1 PATCH(ES);OTHER FREQUENCY:WEEKLY;?
     Route: 062
     Dates: start: 20181211, end: 20181219
  4. MAGNESIUM [Concomitant]
     Active Substance: MAGNESIUM
  5. CLIMARA [Concomitant]
     Active Substance: ESTRADIOL
  6. IBUPROFEN. [Concomitant]
     Active Substance: IBUPROFEN

REACTIONS (4)
  - Withdrawal syndrome [None]
  - Incorrect dose administered by product [None]
  - Device adhesion issue [None]
  - Product substitution issue [None]

NARRATIVE: CASE EVENT DATE: 20181217
